FAERS Safety Report 7923487-6 (Version None)
Quarter: 2011Q4

REPORT INFORMATION
  Report Type: 
  Country: None (occurrence: None)
  Receive Date: 20111117
  Receipt Date: 20110203
  Transmission Date: 20120403
  Serious: No
  Sender: FDA-Public Use
  Company Number: US-AMGEN-USASP2011005882

PATIENT
  Age: 53 Year
  Sex: Female
  Weight: 78.8 kg

DRUGS (1)
  1. ENBREL [Suspect]
     Indication: SPONDYLOARTHROPATHY
     Dosage: 50 MG, QWK
     Dates: start: 20101216

REACTIONS (5)
  - OEDEMA PERIPHERAL [None]
  - INJECTION SITE ERYTHEMA [None]
  - INJECTION SITE RASH [None]
  - INSOMNIA [None]
  - PARAESTHESIA [None]
